FAERS Safety Report 7094285-3 (Version None)
Quarter: 2010Q4

REPORT INFORMATION
  Report Type: 
  Country: None (occurrence: None)
  Receive Date: 20101110
  Receipt Date: 20101101
  Transmission Date: 20110411
  Serious: Yes (Other)
  Sender: FDA-Public Use
  Company Number: US-ABBOTT-10P-163-0682676-00

PATIENT
  Sex: Male
  Weight: 59.02 kg

DRUGS (4)
  1. HUMIRA [Suspect]
     Indication: COLITIS ULCERATIVE
     Dates: start: 20090101, end: 20100801
  2. FOLIC ACID [Concomitant]
     Indication: VITAMIN SUPPLEMENTATION
  3. MERCAPTOPURINE [Concomitant]
     Indication: COLITIS ULCERATIVE
     Dates: start: 20090415
  4. LOPERAMIDE [Concomitant]
     Indication: DIARRHOEA

REACTIONS (8)
  - ARTHRALGIA [None]
  - BLOOD IRON DECREASED [None]
  - DIARRHOEA [None]
  - HAEMATOCHEZIA [None]
  - MALAISE [None]
  - PRURITUS [None]
  - RASH PAPULAR [None]
  - WEIGHT DECREASED [None]
